FAERS Safety Report 24241292 (Version 2)
Quarter: 2024Q3

REPORT INFORMATION
  Report Type: Report from Study
  Country: US (occurrence: US)
  Receive Date: 20240823
  Receipt Date: 20240827
  Transmission Date: 20241017
  Serious: Yes (Hospitalization)
  Sender: ABBVIE
  Company Number: US-ABBVIE-5887233

PATIENT
  Age: 74 Year
  Sex: Female
  Weight: 99.79 kg

DRUGS (1)
  1. CREON [Suspect]
     Active Substance: PANCRELIPASE AMYLASE\PANCRELIPASE LIPASE\PANCRELIPASE PROTEASE
     Indication: Pancreatic enzymes decreased
     Dosage: 2 CAPS EACH MEAL AND 1 CAP EACH SNACK
     Route: 048
     Dates: start: 202402

REACTIONS (3)
  - Humerus fracture [Unknown]
  - Mobility decreased [Recovered/Resolved]
  - Fall [Recovered/Resolved]

NARRATIVE: CASE EVENT DATE: 20240801
